FAERS Safety Report 22976633 (Version 2)
Quarter: 2023Q4

REPORT INFORMATION
  Report Type: Spontaneous
  Country: US (occurrence: US)
  Receive Date: 20230925
  Receipt Date: 20231120
  Transmission Date: 20240110
  Serious: No
  Sender: FDA-Public Use
  Company Number: US-BRISTOL-MYERS SQUIBB COMPANY-2023-135578

PATIENT
  Age: 83 Year
  Sex: Female

DRUGS (1)
  1. REVLIMID [Suspect]
     Active Substance: LENALIDOMIDE
     Indication: Plasma cell myeloma
     Dosage: FREQUENCY: 1 CAPSULE BY MOUTH NIGHTLY AT BEDTIME FOR 21 DAYS ON AND 7 DAYS OF
     Route: 048
     Dates: start: 202302

REACTIONS (5)
  - Weight decreased [Unknown]
  - Diarrhoea [Unknown]
  - Constipation [Unknown]
  - Tinnitus [Unknown]
  - Dysphonia [Unknown]
